FAERS Safety Report 9521218 (Version 1)
Quarter: 2013Q1

REPORT INFORMATION
  Report Type: Spontaneous
  Country: US (occurrence: None)
  Receive Date: 20130305
  Receipt Date: 20130305
  Transmission Date: 20140127
  Serious: Yes (Other)
  Sender: FDA-Public Use
  Company Number: 163-21880-12062419

PATIENT
  Age: 64 Year
  Sex: Male

DRUGS (2)
  1. REVLIMID [Suspect]
     Indication: PLASMA CELL MYELOMA
     Dosage: 25 MG, 21 IN 21 D, PO
     Route: 048
     Dates: start: 20120417, end: 201208
  2. DEXAMETHASONE (DEXAMETHASONE) (UNKNOWN) [Concomitant]

REACTIONS (11)
  - Flatulence [None]
  - Impaired gastric emptying [None]
  - Abdominal pain upper [None]
  - Nausea [None]
  - Chest discomfort [None]
  - Increased tendency to bruise [None]
  - Asthenia [None]
  - Fatigue [None]
  - Psychomotor hyperactivity [None]
  - Insomnia [None]
  - Abdominal discomfort [None]
